FAERS Safety Report 5901606-0 (Version None)
Quarter: 2008Q3

REPORT INFORMATION
  Report Type: 
  Country: None (occurrence: None)
  Receive Date: 20080926
  Receipt Date: 20080926
  Transmission Date: 20090109
  Serious: Yes (Death)
  Sender: FDA-Public Use
  Company Number: None

PATIENT
  Age: 44 Year
  Sex: Male
  Weight: 110.2241 kg

DRUGS (1)
  1. DEFINITY [Suspect]
     Indication: CONGESTIVE CARDIOMYOPATHY
     Dosage: SEE NARRATIVE ONE TIME IV BOLUS
     Route: 040

REACTIONS (5)
  - CONVULSION [None]
  - CYANOSIS [None]
  - HYPERSENSITIVITY [None]
  - PARAESTHESIA [None]
  - UNRESPONSIVE TO STIMULI [None]
